FAERS Safety Report 16640069 (Version 2)
Quarter: 2019Q3

REPORT INFORMATION
  Report Type: Report from Study
  Country: PK (occurrence: PK)
  Receive Date: 20190727
  Receipt Date: 20190728
  Transmission Date: 20191004
  Serious: Yes (Death, Hospitalization)
  Sender: FDA-Public Use
  Company Number: PHHY2019PK173387

PATIENT
  Age: 17 Year
  Sex: Male

DRUGS (3)
  1. MYFORTIC [Suspect]
     Active Substance: MYCOPHENOLATE SODIUM
     Indication: TRANSPLANT
     Dosage: 2 DF, BID
     Route: 048
     Dates: start: 20190101
  2. TACROSAN [Suspect]
     Active Substance: TACROLIMUS
     Indication: TRANSPLANT
     Dosage: 0.5 MG, BID
     Route: 048
     Dates: start: 20190101
  3. TACROSAN [Suspect]
     Active Substance: TACROLIMUS
     Dosage: 3 DF (1 MG), BID
     Route: 048
     Dates: start: 20190101

REACTIONS (4)
  - Chest discomfort [Unknown]
  - Death [Fatal]
  - Lung infection [Unknown]
  - Dyspnoea [Unknown]

NARRATIVE: CASE EVENT DATE: 20190702
